FAERS Safety Report 7564818-9 (Version None)
Quarter: 2011Q2

REPORT INFORMATION
  Report Type: 
  Country: None (occurrence: None)
  Receive Date: 20110622
  Receipt Date: 20110121
  Transmission Date: 20111010
  Serious: Yes (Other)
  Sender: FDA-Public Use
  Company Number: US-MYLANLABS-2010S1022836

PATIENT
  Age: 60 Year
  Sex: Male

DRUGS (8)
  1. CLOZAPINE [Suspect]
     Route: 048
     Dates: end: 20101223
  2. LASIX [Concomitant]
     Route: 048
  3. CYMBALTA [Concomitant]
     Route: 048
  4. DEPAKOTE ER [Concomitant]
     Dosage: 250 MG AND 500 MG
     Route: 048
  5. LYRICA [Concomitant]
     Route: 048
  6. CLOZAPINE [Suspect]
     Indication: SCHIZOPHRENIA
     Route: 048
     Dates: start: 20101004
  7. LORAZEPAM [Concomitant]
     Route: 048
  8. ZOCOR [Concomitant]
     Route: 048

REACTIONS (3)
  - GRANULOCYTOPENIA [None]
  - NEUTROPENIA [None]
  - LEUKOPENIA [None]
